FAERS Safety Report 8223324-9 (Version None)
Quarter: 2012Q1

REPORT INFORMATION
  Report Type: 
  Country: None (occurrence: None)
  Receive Date: 20120321
  Receipt Date: 20120315
  Transmission Date: 20120608
  Serious: Yes (Hospitalization)
  Sender: FDA-Public Use
  Company Number: PL-ROCHE-1042675

PATIENT
  Age: 54 Year
  Sex: Female
  Weight: 65 kg

DRUGS (7)
  1. VEMURAFENIB [Suspect]
     Indication: MALIGNANT MELANOMA
     Route: 048
     Dates: start: 20120119, end: 20120213
  2. DEXAMETHASONE [Concomitant]
     Dates: start: 20120119
  3. VEMURAFENIB [Suspect]
     Route: 048
     Dates: start: 20120227
  4. VEMURAFENIB [Suspect]
     Route: 048
     Dates: start: 20120220
  5. DURAGESIC-100 [Concomitant]
     Dates: start: 20111222
  6. DEPAKENE [Concomitant]
     Dates: start: 20111109
  7. FUROSEMIDE [Concomitant]
     Dates: start: 20111109

REACTIONS (1)
  - NEUTROPENIA [None]
